FAERS Safety Report 6157623-1 (Version None)
Quarter: 2009Q2

REPORT INFORMATION
  Report Type: 
  Country: None (occurrence: None)
  Receive Date: 20090414
  Receipt Date: 20090414
  Transmission Date: 20091009
  Serious: No
  Sender: FDA-Public Use
  Company Number: None

PATIENT
  Sex: Female

DRUGS (18)
  1. CAPECITABINE 500MG AND 150MG ROCHE [Suspect]
     Indication: PANCREATIC CARCINOMA
     Dosage: 1000MG/M2 TWICE DAILY D1-7 PO
     Route: 048
     Dates: start: 20090225, end: 20090325
  2. GEMCITABINE [Suspect]
     Indication: PANCREATIC CARCINOMA
     Dosage: 1000MG/M2 Q 2 WEEKS IV
     Route: 042
     Dates: start: 20090225, end: 20090325
  3. LIPITOR [Concomitant]
  4. PREVACID [Concomitant]
  5. SYNTHROID [Concomitant]
  6. PANCREASE [Concomitant]
  7. ASPIRIN [Concomitant]
  8. VIT. C [Concomitant]
  9. CENTRUM SILVER [Concomitant]
  10. CALCIUM [Concomitant]
  11. OXYCONTIN [Concomitant]
  12. COMPAZINE [Concomitant]
  13. LERAZEPAM [Concomitant]
  14. COLACE [Concomitant]
  15. MIRALAX [Concomitant]
  16. DARVOLET+N100 [Concomitant]
  17. ONDANSETRON [Concomitant]
  18. VITAMIN B6 [Concomitant]

REACTIONS (3)
  - BLISTER [None]
  - OEDEMA PERIPHERAL [None]
  - PAIN IN EXTREMITY [None]
